FAERS Safety Report 20902730 (Version 6)
Quarter: 2024Q4

REPORT INFORMATION
  Report Type: Report from Study
  Country: FR (occurrence: FR)
  Receive Date: 20220601
  Receipt Date: 20241210
  Transmission Date: 20250115
  Serious: Yes (Death)
  Sender: MYLAN
  Company Number: FR-ROCHE-3095154

PATIENT
  Age: 86 Year
  Sex: Male
  Weight: 61 kg

DRUGS (6)
  1. PACLITAXEL [Suspect]
     Active Substance: PACLITAXEL
     Indication: Neoplasm malignant
     Dosage: 150 MILLIGRAM, QW
     Route: 042
     Dates: start: 20211222, end: 20220112
  2. PACLITAXEL [Suspect]
     Active Substance: PACLITAXEL
     Indication: Neoplasm
     Dosage: UNK,ON 12/JAN/2022, TOOK MOST RECENT DOSE OF STUDY DRUG
     Route: 042
     Dates: start: 20220112
  3. FLUOROURACIL [Suspect]
     Active Substance: FLUOROURACIL
     Indication: Neoplasm malignant
     Dosage: UNK
     Route: 065
     Dates: start: 20210113, end: 20210330
  4. OXALIPLATIN [Suspect]
     Active Substance: OXALIPLATIN
     Indication: Neoplasm malignant
     Dosage: UNK, Q2W
     Route: 042
     Dates: start: 20210113, end: 20210330
  5. FOLIC ACID [Suspect]
     Active Substance: FOLIC ACID
     Indication: Neoplasm malignant
     Dosage: UNK UNK, Q3W
     Route: 042
     Dates: start: 20210113, end: 20210330
  6. MORPHINE SULFATE [Concomitant]
     Active Substance: MORPHINE SULFATE
     Dosage: UNK
     Route: 065

REACTIONS (1)
  - General physical health deterioration [Fatal]

NARRATIVE: CASE EVENT DATE: 20220111
